FAERS Safety Report 18959842 (Version 5)
Quarter: 2024Q2

REPORT INFORMATION
  Report Type: Spontaneous
  Country: US (occurrence: US)
  Receive Date: 20210302
  Receipt Date: 20240606
  Transmission Date: 20240715
  Serious: Yes (Other)
  Sender: FDA-Public Use
  Company Number: US-SANOFI-00481222

PATIENT
  Age: 58 Year
  Sex: Female

DRUGS (9)
  1. LANTUS SOLOSTAR [Suspect]
     Active Substance: INSULIN GLARGINE
     Indication: Type 2 diabetes mellitus
     Dosage: 20 IU, Q12H
     Route: 065
  2. LANTUS SOLOSTAR [Suspect]
     Active Substance: INSULIN GLARGINE
     Dosage: 25 IU, BID
     Route: 065
  3. NAPROXEN [Concomitant]
     Active Substance: NAPROXEN
  4. ASPIRIN [Concomitant]
     Active Substance: ASPIRIN
  5. PANTOPRAZOLE [Concomitant]
     Active Substance: PANTOPRAZOLE
  6. DILTIAZEM [Concomitant]
     Active Substance: DILTIAZEM
  7. LISINOPRIL [Concomitant]
     Active Substance: LISINOPRIL
  8. LASIX [Concomitant]
     Active Substance: FUROSEMIDE
  9. VITAMIN D2 [Concomitant]
     Active Substance: ERGOCALCIFEROL

REACTIONS (5)
  - Neuropathy peripheral [Unknown]
  - Hypertension [Unknown]
  - Thyroid disorder [Unknown]
  - Back disorder [Unknown]
  - Inappropriate schedule of product administration [Unknown]
